FAERS Safety Report 8065445-X (Version None)
Quarter: 2011Q4

REPORT INFORMATION
  Report Type: 
  Country: None (occurrence: None)
  Receive Date: 20111221
  Receipt Date: 20110913
  Transmission Date: 20120403
  Serious: Yes (Hospitalization)
  Sender: FDA-Public Use
  Company Number: PHHY2011US57980

PATIENT
  Age: 40 Year
  Sex: Male
  Weight: 68 kg

DRUGS (5)
  1. HYDRA (ISONIAZID) [Concomitant]
  2. OXYCODONE HCL [Concomitant]
  3. PERCOCET [Concomitant]
  4. PROMETHAZINE [Concomitant]
  5. EXJADE [Suspect]
     Indication: SICKLE CELL ANAEMIA
     Dosage: 1500MG, DAILY, ORAL
     Route: 048
     Dates: start: 20091007

REACTIONS (1)
  - SICKLE CELL ANAEMIA WITH CRISIS [None]
